FAERS Safety Report 23782375 (Version 1)
Quarter: 2024Q2

REPORT INFORMATION
  Report Type: Spontaneous
  Country: US (occurrence: US)
  Receive Date: 20240425
  Receipt Date: 20240425
  Transmission Date: 20240716
  Serious: Yes (Other)
  Sender: FDA-Public Use
  Company Number: US-009507513-2404USA008959

PATIENT
  Age: 51 Year
  Sex: Female

DRUGS (2)
  1. TEMODAR [Suspect]
     Active Substance: TEMOZOLOMIDE
     Indication: Glioblastoma
     Dosage: CHEMORADIATION THERAPY
     Route: 048
     Dates: end: 20230725
  2. TEMODAR [Suspect]
     Active Substance: TEMOZOLOMIDE
     Dosage: ADJUVANT THERAPY
     Route: 048
     Dates: start: 202308

REACTIONS (1)
  - Malignant neoplasm progression [Unknown]

NARRATIVE: CASE EVENT DATE: 20231201
